FAERS Safety Report 4534646-7 (Version None)
Quarter: 2004Q4

REPORT INFORMATION
  Report Type: 
  Country: None (occurrence: None)
  Receive Date: 20041214
  Receipt Date: 20041014
  Transmission Date: 20050328
  Serious: No
  Sender: FDA-Public Use
  Company Number: 2004239876US

PATIENT
  Sex: Male

DRUGS (1)
  1. BEXTRA [Suspect]
     Indication: ARTHRALGIA
     Dosage: 10 MG

REACTIONS (1)
  - HALLUCINATION [None]
